FAERS Safety Report 22358831 (Version 1)
Quarter: 2023Q2

REPORT INFORMATION
  Report Type: Spontaneous
  Country: US (occurrence: US)
  Receive Date: 20230524
  Receipt Date: 20230524
  Transmission Date: 20230722
  Serious: Yes (Other)
  Sender: FDA-Public Use
  Company Number: US-UCBSA-2022062800

PATIENT
  Age: 30 Year
  Sex: Female

DRUGS (5)
  1. CIMZIA [Suspect]
     Active Substance: CERTOLIZUMAB PEGOL
     Indication: Rheumatoid arthritis
     Dosage: 400 MILLIGRAM, EV 4 WEEKS
     Route: 058
     Dates: start: 20211019
  2. CIMZIA [Suspect]
     Active Substance: CERTOLIZUMAB PEGOL
     Indication: Spondyloarthropathy
     Dosage: 200 MILLIGRAM, MONTHLY (QM)
     Route: 058
  3. TRAMADOL [Concomitant]
     Active Substance: TRAMADOL
     Indication: Pain
     Dosage: UNK
  4. HYDROXYCHLOROQUINE [Concomitant]
     Active Substance: HYDROXYCHLOROQUINE
     Indication: Pain
     Dosage: UNK
  5. DICLOFENAC [Concomitant]
     Active Substance: DICLOFENAC
     Indication: Pain
     Dosage: UNK

REACTIONS (5)
  - Rheumatoid arthritis [Unknown]
  - Therapy interrupted [Unknown]
  - Product use in unapproved indication [Unknown]
  - Inappropriate schedule of product administration [Unknown]
  - Therapeutic product effect incomplete [Unknown]

NARRATIVE: CASE EVENT DATE: 20211001
